FAERS Safety Report 4909354-0 (Version None)
Quarter: 2006Q1

REPORT INFORMATION
  Report Type: 
  Country: None (occurrence: None)
  Receive Date: 20060213
  Receipt Date: 20060119
  Transmission Date: 20060701
  Serious: Yes (Hospitalization)
  Sender: FDA-Public Use
  Company Number: JP-JPN-A200600263

PATIENT
  Sex: Male

DRUGS (6)
  1. PAXIL [Suspect]
     Dosage: 10MG TWICE PER DAY
     Dates: start: 20051101, end: 20051101
  2. PAXIL [Suspect]
     Dosage: 10MG THREE TIMES PER DAY
     Dates: start: 20051201, end: 20060113
  3. MEILAX [Concomitant]
     Dates: start: 20051201
  4. FLUNITRAZEPAM [Concomitant]
     Dates: start: 20051201
  5. AMOXAN [Concomitant]
     Dates: start: 20051101
  6. RHYTHMY [Concomitant]

REACTIONS (5)
  - CONVULSION [None]
  - CONVULSION NEONATAL [None]
  - DRUG EXPOSURE DURING PREGNANCY [None]
  - SOMNOLENCE [None]
  - SOMNOLENCE NEONATAL [None]
